FAERS Safety Report 7439902-0 (Version None)
Quarter: 2011Q2

REPORT INFORMATION
  Report Type: 
  Country: None (occurrence: None)
  Receive Date: 20110427
  Receipt Date: 20110413
  Transmission Date: 20111010
  Serious: Yes (Death)
  Sender: FDA-Public Use
  Company Number: US-JNJFOC-20110208261

PATIENT
  Sex: Male
  Weight: 154.22 kg

DRUGS (27)
  1. REMICADE [Suspect]
     Indication: CROHN'S DISEASE
     Route: 042
  2. ACTOS [Concomitant]
  3. COUMADIN [Concomitant]
     Dosage: 5-10 MG AS DIRECTED
  4. FOLIC ACID [Concomitant]
     Route: 048
  5. NASONEX [Concomitant]
     Dosage: 50 MCG SPRAY AS NEEDED
  6. TOPROL-XL [Concomitant]
     Route: 048
  7. VITAMIN B COMPLEX CAP [Concomitant]
     Route: 048
  8. FUROSEMIDE [Concomitant]
     Route: 048
  9. LOMOTIL [Concomitant]
     Dosage: 0.025/2.5 MG TID AS NEEDED FOR DIARRHEA
     Route: 048
  10. OMEPRAZOLE [Concomitant]
     Route: 048
  11. WELCHOL [Concomitant]
     Route: 048
  12. REMICADE [Suspect]
     Route: 042
  13. CLARITIN [Concomitant]
     Dosage: 10 MG DAILY PRN
     Route: 048
  14. LOTREL [Concomitant]
     Dosage: 5/10 MG DAILY
  15. DICYCLOMINE [Concomitant]
  16. AZATHIOPRINE [Concomitant]
     Route: 048
  17. ASACOL [Concomitant]
     Route: 048
  18. KLOR-CON [Concomitant]
     Route: 048
  19. PREDNISONE [Concomitant]
     Route: 048
  20. ASPIRIN [Concomitant]
  21. FERROUS SULFATE TAB [Concomitant]
     Route: 048
  22. NITROSTAT [Concomitant]
  23. XALATAN [Concomitant]
     Dosage: 1 DROP EACH EYE DAILY
     Route: 047
  24. ENTOCORT EC [Concomitant]
  25. FENOFIBRATE [Concomitant]
     Route: 048
  26. GLUCOVANCE [Concomitant]
     Dosage: 2.5/500 MG 2 TWICE A DAY
  27. VITAMIN D [Concomitant]
     Route: 048

REACTIONS (3)
  - CARDIAC FAILURE CONGESTIVE [None]
  - MYOCARDIAL INFARCTION [None]
  - ILEAL STENOSIS [None]
